FAERS Safety Report 15411157 (Version 2)
Quarter: 2019Q2

REPORT INFORMATION
  Report Type: Spontaneous
  Country: US (occurrence: US)
  Receive Date: 20180921
  Receipt Date: 20190510
  Transmission Date: 20190711
  Serious: Yes (Other)
  Sender: FDA-Public Use
  Company Number: US-PFIZER INC-2018381419

PATIENT
  Sex: Female
  Weight: 63.5 kg

DRUGS (1)
  1. PREMARIN [Suspect]
     Active Substance: ESTROGENS, CONJUGATED
     Indication: HORMONE THERAPY
     Dosage: 1.0 MG, WEEKLY(APPLIED VAGINALLY ONCE A WEEK)
     Route: 067
     Dates: start: 1998

REACTIONS (7)
  - Myocardial infarction [Recovered/Resolved]
  - Thermal burn [Unknown]
  - Pain in extremity [Unknown]
  - Product use issue [Unknown]
  - Hypoacusis [Unknown]
  - Conversion disorder [Unknown]
  - Abdominal pain upper [Unknown]
